FAERS Safety Report 5627463-8 (Version None)
Quarter: 2008Q1

REPORT INFORMATION
  Report Type: 
  Country: None (occurrence: None)
  Receive Date: 20080214
  Receipt Date: 20080214
  Transmission Date: 20080703
  Serious: Yes (Other)
  Sender: FDA-Public Use
  Company Number: None

PATIENT
  Sex: Female
  Weight: 56.6996 kg

DRUGS (1)
  1. CHANTIX [Suspect]
     Indication: SMOKING CESSATION THERAPY
     Dosage: 1 2DAILY PO
     Route: 048
     Dates: start: 20070822, end: 20070910

REACTIONS (6)
  - CRYING [None]
  - EMOTIONAL DISORDER [None]
  - IRRITABILITY [None]
  - MOOD ALTERED [None]
  - PERSONALITY CHANGE [None]
  - SOCIAL AVOIDANT BEHAVIOUR [None]
